FAERS Safety Report 5061471-3 (Version None)
Quarter: 2006Q3

REPORT INFORMATION
  Report Type: 
  Country: None (occurrence: None)
  Receive Date: 20060721
  Receipt Date: 20060705
  Transmission Date: 20061208
  Serious: Yes (Hospitalization, Disabling)
  Sender: FDA-Public Use
  Company Number: US_0508120559

PATIENT
  Age: 55 Year
  Sex: Female
  Weight: 59 kg

DRUGS (5)
  1. HUMALOG MIX 75/25 [Suspect]
     Indication: DIABETES MELLITUS NON-INSULIN-DEPENDENT
     Dosage: OTHER, SUBCUTANEOUS
     Route: 058
     Dates: start: 20010101
  2. HUMALOG MIX 25L / 75NPL PEN (HUMALOG MIX 25L / 75NPL PEN) PEN,DISPOSAB [Concomitant]
  3. AVANDIA [Concomitant]
  4. ANTI-HYPERTENSIVE AGENT (ANTI-HYPERTENSIVE AGENT) [Concomitant]
  5. TRENTAL [Concomitant]

REACTIONS (10)
  - ARTERIAL BYPASS OPERATION [None]
  - BLOOD GLUCOSE INCREASED [None]
  - CARDIOVASCULAR DISORDER [None]
  - DIALYSIS [None]
  - LEG AMPUTATION [None]
  - PAIN [None]
  - PAIN IN EXTREMITY [None]
  - POOR PERIPHERAL CIRCULATION [None]
  - RENAL DISORDER [None]
  - VASCULAR GRAFT OCCLUSION [None]
